FAERS Safety Report 5002441-0 (Version None)
Quarter: 2006Q2

REPORT INFORMATION
  Report Type: 
  Country: None (occurrence: None)
  Receive Date: 20060515
  Receipt Date: 20041029
  Transmission Date: 20061013
  Serious: Yes (Death, Life-Threatening, Hospitalization, Disabling)
  Sender: FDA-Public Use
  Company Number: US-MERCK-0411USA00043

PATIENT
  Age: 70 Year
  Sex: Female
  Weight: 72 kg

DRUGS (10)
  1. VIOXX [Suspect]
     Indication: OSTEOARTHRITIS
     Route: 048
     Dates: start: 19991001, end: 20040901
  2. IBUPROFEN [Concomitant]
     Route: 065
  3. [THERAPY UNSPECIFIED] [Concomitant]
     Route: 065
  4. NEURONTIN [Concomitant]
     Route: 065
  5. BUSPAR [Concomitant]
     Route: 065
  6. EFFEXOR [Concomitant]
     Route: 065
  7. PROTONIX [Concomitant]
     Route: 065
  8. AMBIEN [Concomitant]
     Route: 065
  9. NIFEREX [Concomitant]
     Route: 065
  10. PLAVIX [Concomitant]
     Route: 065

REACTIONS (5)
  - CARDIAC FAILURE CONGESTIVE [None]
  - CEREBROVASCULAR ACCIDENT [None]
  - CHEST PAIN [None]
  - DEATH [None]
  - MYOCARDIAL INFARCTION [None]
